FAERS Safety Report 4983822-8 (Version None)
Quarter: 2006Q1

REPORT INFORMATION
  Report Type: 
  Country: None (occurrence: None)
  Receive Date: 20060301
  Receipt Date: 20051115
  Transmission Date: 20060701
  Serious: No
  Sender: FDA-Public Use
  Company Number: S05-USA-04986-01

PATIENT

DRUGS (2)
  1. NAMENDA [Suspect]
  2. ARICEPT [Concomitant]

REACTIONS (2)
  - EXCITABILITY [None]
  - FALL [None]
